FAERS Safety Report 4978601-1 (Version None)
Quarter: 2006Q2

REPORT INFORMATION
  Report Type: 
  Country: None (occurrence: None)
  Receive Date: 20060420
  Receipt Date: 20050926
  Transmission Date: 20061013
  Serious: Yes (Hospitalization, Disabling, Other)
  Sender: FDA-Public Use
  Company Number: US-MERCK-0509USA03867

PATIENT
  Age: 59 Year
  Sex: Female
  Weight: 127 kg

DRUGS (7)
  1. VIOXX [Suspect]
     Indication: OSTEOARTHRITIS
     Route: 048
     Dates: start: 19991101, end: 20040901
  2. VIOXX [Suspect]
     Indication: ARTHRALGIA
     Route: 048
     Dates: start: 19991101, end: 20040901
  3. TYLENOL (CAPLET) [Concomitant]
     Route: 065
  4. PREVACID [Concomitant]
     Route: 065
  5. PLENDIL [Concomitant]
     Route: 065
  6. PREMPRO [Concomitant]
     Route: 065
  7. SINGULAIR [Concomitant]
     Route: 065

REACTIONS (44)
  - ADRENAL MASS [None]
  - APHASIA [None]
  - ARTERIOSCLEROSIS [None]
  - ARTHRALGIA [None]
  - ARTHRITIS [None]
  - ARTHROPATHY [None]
  - ASTHENIA [None]
  - BREAST PAIN [None]
  - BRONCHOSPASM [None]
  - CEREBROVASCULAR ACCIDENT [None]
  - COGNITIVE DISORDER [None]
  - CONFUSIONAL STATE [None]
  - COSTOCHONDRITIS [None]
  - DIVERTICULITIS [None]
  - EYE PAIN [None]
  - FATIGUE [None]
  - FEELING ABNORMAL [None]
  - GASTROOESOPHAGEAL REFLUX DISEASE [None]
  - HAEMORRHOIDS [None]
  - HIRSUTISM [None]
  - HYPERALDOSTERONISM [None]
  - HYPERTENSION [None]
  - HYPOKALAEMIA [None]
  - INTERVERTEBRAL DISC DEGENERATION [None]
  - LABYRINTHITIS [None]
  - MALAISE [None]
  - MUSCLE SPASMS [None]
  - NEOPLASM MALIGNANT [None]
  - NOCTURIA [None]
  - NOCTURNAL DYSPNOEA [None]
  - OESOPHAGEAL MASS [None]
  - PALPITATIONS [None]
  - PARAESTHESIA [None]
  - PARANASAL SINUS HYPERSECRETION [None]
  - PERIPHERAL VASCULAR DISORDER [None]
  - RETINAL HAEMORRHAGE [None]
  - RHINITIS [None]
  - SNORING [None]
  - SOMNOLENCE [None]
  - TENDON INJURY [None]
  - THYROID MALFORMATION [None]
  - TRANSIENT ISCHAEMIC ATTACK [None]
  - VISUAL DISTURBANCE [None]
  - WEIGHT INCREASED [None]
